FAERS Safety Report 24703304 (Version 1)
Quarter: 2024Q4

REPORT INFORMATION
  Report Type: Spontaneous
  Country: JP (occurrence: JP)
  Receive Date: 20241205
  Receipt Date: 20241205
  Transmission Date: 20250114
  Serious: Yes (Hospitalization)
  Sender: ORGANON
  Company Number: JP-ORGANON-O2412JPN000082

PATIENT
  Age: 81 Year
  Sex: Female
  Weight: 70 kg

DRUGS (8)
  1. CARBIDOPA\LEVODOPA [Suspect]
     Active Substance: CARBIDOPA\LEVODOPA
     Dosage: 100 MILLIGRAM, BID, BEFORE BREAKFAST AND BEFORE BEDTIME
     Route: 048
     Dates: start: 20230410, end: 20240620
  2. ASPIRIN\VONOPRAZAN FUMARATE [Concomitant]
     Active Substance: ASPIRIN\VONOPRAZAN FUMARATE
     Dosage: UNK
     Route: 048
  3. AMLODIPINE [Concomitant]
     Active Substance: AMLODIPINE BESYLATE
     Dosage: UNK
     Route: 048
  4. LIVAZEBE [Concomitant]
     Dosage: UNK
     Route: 048
  5. ELDECALCITOL [Concomitant]
     Active Substance: ELDECALCITOL
     Dosage: UNK
     Route: 048
  6. LYRICA [Concomitant]
     Active Substance: PREGABALIN
     Dosage: 75 MILLIGRAM, QD
     Route: 048
  7. SENNOSIDES A AND B [Concomitant]
     Active Substance: SENNOSIDES A AND B
     Dosage: UNK
     Route: 048
  8. BISOPROLOL FUMARATE [Concomitant]
     Active Substance: BISOPROLOL FUMARATE
     Dosage: 1.25 MILLIGRAM, QD
     Route: 048

REACTIONS (1)
  - Parkinsonism [Recovering/Resolving]

NARRATIVE: CASE EVENT DATE: 20240620
